FAERS Safety Report 21391093 (Version 1)
Quarter: 2022Q3

REPORT INFORMATION
  Report Type: Spontaneous
  Country: US (occurrence: None)
  Receive Date: 20220928
  Receipt Date: 20220928
  Transmission Date: 20221027
  Serious: No
  Sender: FDA-Public Use
  Company Number: None

PATIENT
  Age: 54 Year
  Sex: Male

DRUGS (1)
  1. HYDRALAZINE HYDROCHLORIDE [Suspect]
     Active Substance: HYDRALAZINE HYDROCHLORIDE
     Dosage: FREQUENCY : TWICE A DAY;?
     Route: 048
     Dates: start: 20220222, end: 20220603

REACTIONS (7)
  - Peripheral swelling [None]
  - Cough [None]
  - Pleuritic pain [None]
  - Painful respiration [None]
  - Acute kidney injury [None]
  - Blood pressure increased [None]
  - Systemic lupus erythematosus [None]

NARRATIVE: CASE EVENT DATE: 20220603
